FAERS Safety Report 9468135 (Version 1)
Quarter: 2013Q3

REPORT INFORMATION
  Report Type: Spontaneous
  Country: IN (occurrence: IN)
  Receive Date: 20130821
  Receipt Date: 20130821
  Transmission Date: 20140515
  Serious: Yes (Other)
  Sender: FDA-Public Use
  Company Number: IN-PFIZER INC-2013238967

PATIENT
  Sex: Male
  Weight: 1.54 kg

DRUGS (7)
  1. PIPERACILLIN/TAZOBACTAM [Suspect]
     Indication: ESCHERICHIA INFECTION
     Dosage: UNK
     Route: 064
  2. AMPICILLIN [Suspect]
     Indication: ENTEROCOCCAL INFECTION
     Dosage: UNK
     Route: 064
  3. ETHAMBUTOL [Suspect]
     Indication: TUBERCULOSIS
     Dosage: UNK
     Route: 064
  4. ISONIAZID [Suspect]
     Indication: TUBERCULOSIS
     Dosage: UNK
     Route: 064
  5. RIFAMPICIN [Suspect]
     Indication: TUBERCULOSIS
     Dosage: UNK
     Route: 064
  6. PYRAZINAMIDE [Suspect]
     Indication: TUBERCULOSIS
     Dosage: UNK
     Route: 064
  7. PYRIDOXINE [Suspect]
     Indication: TUBERCULOSIS
     Dosage: UNK
     Route: 064

REACTIONS (2)
  - Maternal exposure during pregnancy [Unknown]
  - Foetal growth restriction [Unknown]
